FAERS Safety Report 15914832 (Version 1)
Quarter: 2019Q1

REPORT INFORMATION
  Report Type: Spontaneous
  Country: US (occurrence: US)
  Receive Date: 20190111
  Receipt Date: 20190111
  Transmission Date: 20190417
  Serious: No
  Sender: FDA-Public Use
  Company Number: None

PATIENT
  Age: 59 Year
  Sex: Male
  Weight: 81 kg

DRUGS (2)
  1. SULFAMETHOXAZOLE/TRIMETHROPRIM [Suspect]
     Active Substance: SULFAMETHOXAZOLE\TRIMETHOPRIM
     Indication: TINEA PEDIS
     Route: 048
     Dates: start: 20180917, end: 20180924
  2. SULFAMETHOXAZOLE/TRIMETHROPRIM [Suspect]
     Active Substance: SULFAMETHOXAZOLE\TRIMETHOPRIM
     Indication: INFECTION
     Route: 048
     Dates: start: 20180917, end: 20180924

REACTIONS (4)
  - Dry mouth [None]
  - Angioedema [None]
  - Chapped lips [None]
  - Cheilitis [None]

NARRATIVE: CASE EVENT DATE: 20180920
